APPROVED DRUG PRODUCT: DONEPEZIL HYDROCHLORIDE
Active Ingredient: DONEPEZIL HYDROCHLORIDE
Strength: 10MG
Dosage Form/Route: TABLET;ORAL
Application: A091267 | Product #002
Applicant: WOCKHARDT LTD
Approved: May 31, 2011 | RLD: No | RS: No | Type: DISCN